FAERS Safety Report 9012812 (Version 1)
Quarter: 2013Q1

REPORT INFORMATION
  Report Type: Spontaneous
  Country: CN (occurrence: CN)
  Receive Date: 20130114
  Receipt Date: 20130114
  Transmission Date: 20140127
  Serious: Yes (Hospitalization, Other)
  Sender: FDA-Public Use
  Company Number: PHHY2012CN123412

PATIENT
  Age: 21 Year
  Sex: Male
  Weight: 60 kg

DRUGS (3)
  1. SEBIVO [Suspect]
     Indication: HEPATITIS B
     Dosage: 600 MG, QD
     Route: 048
     Dates: start: 20070618, end: 20090618
  2. HEPSERA [Suspect]
     Indication: HEPATITIS B
     Dosage: UNK UKN, UNK
  3. INTERFERON [Suspect]
     Indication: HEPATITIS C

REACTIONS (16)
  - Hepatic function abnormal [Unknown]
  - Palpitations [Unknown]
  - Oedema peripheral [Unknown]
  - Chest discomfort [Unknown]
  - Vomiting [Unknown]
  - Nausea [Unknown]
  - Myopathy [Recovering/Resolving]
  - Inferior vena cava dilatation [Unknown]
  - Blood uric acid increased [Unknown]
  - Blood pH decreased [Unknown]
  - Lactic acidosis [Recovering/Resolving]
  - Blood lactic acid increased [Recovering/Resolving]
  - Full blood count abnormal [Unknown]
  - Tricuspid valve incompetence [Unknown]
  - Blood pressure decreased [Unknown]
  - Blood creatine phosphokinase increased [Unknown]
